FAERS Safety Report 8952517 (Version 2)
Quarter: 2013Q2

REPORT INFORMATION
  Report Type: Spontaneous
  Country: US (occurrence: US)
  Receive Date: 20121205
  Receipt Date: 20130401
  Transmission Date: 20140414
  Serious: Yes (Hospitalization)
  Sender: FDA-Public Use
  Company Number: US-BAYER-2012-126095

PATIENT
  Age: 32 Year
  Sex: Female

DRUGS (18)
  1. YASMIN [Suspect]
     Dosage: UNK
  2. YAZ [Suspect]
     Dosage: UNK
  3. AMBIEN [Concomitant]
  4. ZYMINE [Concomitant]
  5. NAPROSYN [Concomitant]
     Dosage: 375 MG, UNK
  6. IBUPROFEN [Concomitant]
  7. PREVACID [Concomitant]
  8. AMOXICILLIN [Concomitant]
     Indication: OROPHARYNGEAL PAIN
     Dosage: 500 MG, UNK
  9. CEPACOL [Concomitant]
     Indication: OROPHARYNGEAL PAIN
  10. ALBUTEROL [Concomitant]
     Indication: DYSPNOEA
  11. ATROVENT [Concomitant]
     Indication: DYSPNOEA
  12. OSCAL [Concomitant]
  13. VITAMIN D [Concomitant]
  14. INDOMETHACIN [Concomitant]
  15. PROGESTINE [Concomitant]
  16. MULTIVITAMIN [Concomitant]
  17. CALCIUM [Concomitant]
  18. NOR-QD [Concomitant]

REACTIONS (5)
  - Deep vein thrombosis [Recovered/Resolved]
  - Pulmonary embolism [Recovered/Resolved]
  - Injury [Recovered/Resolved]
  - Pain [Recovered/Resolved]
  - Pain [None]
